FAERS Safety Report 9583664 (Version 2)
Quarter: 2013Q4

REPORT INFORMATION
  Report Type: Spontaneous
  Country: US (occurrence: US)
  Receive Date: 20131002
  Receipt Date: 20131002
  Transmission Date: 20140711
  Serious: No
  Sender: FDA-Public Use
  Company Number: US-AMGEN-USASP2013046853

PATIENT
  Age: 51 Year
  Sex: Female
  Weight: 88.89 kg

DRUGS (13)
  1. ENBREL [Suspect]
     Indication: PRODUCT USED FOR UNKNOWN INDICATION
     Dosage: 50 MG, QWK
     Route: 058
     Dates: start: 20100820
  2. FOLIC ACID [Concomitant]
     Dosage: UNK
  3. CALCIUM [Concomitant]
     Dosage: 600 UNK, UNK
  4. VITAMIN B-12 [Concomitant]
     Dosage: 1000 MUG, UNK
  5. PRENATAL VITAMINS                  /02014401/ [Concomitant]
     Dosage: UNK
  6. CO Q-10 [Concomitant]
     Dosage: UNK
  7. AUGMENTIN                          /00756801/ [Concomitant]
     Dosage: 500 MG, UNK
  8. METHOTREXATE [Concomitant]
     Dosage: 2.5 MG, UNK
  9. DIOVAN [Concomitant]
     Dosage: 160 MG, UNK
  10. HYDROCHLOROTH [Concomitant]
     Dosage: 12.5 MG, UNK
  11. SINGULAIR [Concomitant]
     Dosage: 10 MG, UNK
  12. ALLEGRA [Concomitant]
     Dosage: 30 MG,ORODISPERSIBLE TABLET (ODT)
  13. POTASSIUM CHLORIDE [Concomitant]
     Dosage: 10 MEQ, CONTROLLED RELEASE

REACTIONS (4)
  - Headache [Recovered/Resolved]
  - Oropharyngeal pain [Recovered/Resolved]
  - Ear infection [Recovered/Resolved]
  - Sinusitis [Unknown]
